FAERS Safety Report 13624970 (Version 1)
Quarter: 2017Q2

REPORT INFORMATION
  Report Type: Spontaneous
  Country: US (occurrence: US)
  Receive Date: 20170608
  Receipt Date: 20170608
  Transmission Date: 20170830
  Serious: Yes (Death)
  Sender: FDA-Public Use
  Company Number: US-AUROBINDO-AUR-APL-2014-02733

PATIENT

DRUGS (1)
  1. VENLAFAXINE HYDROCHLORIDE EXTENDED-RELEASE CAPSULES 75MG [Suspect]
     Active Substance: VENLAFAXINE HYDROCHLORIDE
     Indication: ANXIETY
     Dosage: 3 DF,ONCE A DAY,
     Route: 065

REACTIONS (4)
  - Nausea [Unknown]
  - Feeling abnormal [Unknown]
  - Product colour issue [Unknown]
  - Tinnitus [Unknown]
